FAERS Safety Report 17461269 (Version 1)
Quarter: 2020Q1

REPORT INFORMATION
  Report Type: Spontaneous
  Country: US (occurrence: US)
  Receive Date: 20200226
  Receipt Date: 20200226
  Transmission Date: 20200409
  Serious: Yes (Hospitalization)
  Sender: FDA-Public Use
  Company Number: US-PARI RESPIRATORY EQUIPMENT, INC.-2020PAR00011

PATIENT
  Age: 18 Year
  Sex: Female

DRUGS (13)
  1. MIRALAX [Concomitant]
     Active Substance: POLYETHYLENE GLYCOL 3350
  2. ZENPEP [Concomitant]
     Active Substance: PANCRELIPASE AMYLASE\PANCRELIPASE LIPASE\PANCRELIPASE PROTEASE
  3. NOVOLOG [Concomitant]
     Active Substance: INSULIN ASPART
  4. PREVACID [Concomitant]
     Active Substance: LANSOPRAZOLE
  5. ZYRTEC [Concomitant]
     Active Substance: CETIRIZINE HYDROCHLORIDE
  6. COLISTIN SULFATE [Concomitant]
     Active Substance: COLISTIN SULFATE
  7. PREDNISONE. [Concomitant]
     Active Substance: PREDNISONE
  8. DYMISTA [Concomitant]
     Active Substance: AZELASTINE HYDROCHLORIDE\FLUTICASONE PROPIONATE
  9. ALBUTEROL SULFATE. [Concomitant]
     Active Substance: ALBUTEROL SULFATE
  10. KITABIS PAK [Suspect]
     Active Substance: TOBRAMYCIN
  11. SYMBICORT [Concomitant]
     Active Substance: BUDESONIDE\FORMOTEROL FUMARATE DIHYDRATE
  12. VITAMIN D [Concomitant]
     Active Substance: VITAMIN D NOS
  13. IRON [Concomitant]
     Active Substance: IRON

REACTIONS (1)
  - Cystic fibrosis [Unknown]
